FAERS Safety Report 4552922-9 (Version None)
Quarter: 2005Q1

REPORT INFORMATION
  Report Type: 
  Country: None (occurrence: None)
  Receive Date: 20050114
  Receipt Date: 20050106
  Transmission Date: 20050727
  Serious: Yes (Death)
  Sender: FDA-Public Use
  Company Number: US-GLAXOSMITHKLINE-A0539627A

PATIENT
  Age: 66 Year
  Sex: Male
  Weight: 88.6 kg

DRUGS (3)
  1. SENSODYNE BAKING SODA TOOTHPASTE [Suspect]
     Indication: SENSITIVITY OF TEETH
     Dates: start: 19900101, end: 19970901
  2. ALLOPURINOL [Concomitant]
     Indication: GOUT
     Route: 048
  3. CARDIZEM [Concomitant]
     Indication: HYPERTENSION
     Route: 048

REACTIONS (1)
  - MYOCARDIAL INFARCTION [None]
